FAERS Safety Report 8554443 (Version 3)
Quarter: 2012Q4

REPORT INFORMATION
  Report Type: Report from Study
  Country: US (occurrence: US)
  Receive Date: 20120509
  Receipt Date: 20121011
  Transmission Date: 20130627
  Serious: Yes (Hospitalization, Other)
  Sender: FDA-Public Use
  Company Number: US-ABBOTT-12P-163-0931869-00

PATIENT
  Age: 46 None
  Sex: Female
  Weight: 49.94 kg

DRUGS (6)
  1. HUMIRA [Suspect]
     Route: 058
     Dates: start: 20110822, end: 201112
  2. HUMIRA [Suspect]
     Route: 058
     Dates: start: 201112, end: 20120212
  3. HUMIRA [Suspect]
     Dates: start: 20120423
  4. SYNTHROID [Concomitant]
     Indication: HYPOTHYROIDISM
  5. MULTIVITAMIN [Concomitant]
     Indication: VITAMIN SUPPLEMENTATION
  6. CALCIUM [Concomitant]
     Indication: MINERAL SUPPLEMENTATION

REACTIONS (5)
  - Uterine leiomyoma [Recovered/Resolved]
  - Abdominal pain [Recovered/Resolved]
  - Myalgia [Not Recovered/Not Resolved]
  - Crohn^s disease [Recovered/Resolved]
  - Injection site erythema [Recovered/Resolved]
